FAERS Safety Report 6249678-0 (Version None)
Quarter: 2009Q2

REPORT INFORMATION
  Report Type: 
  Country: None (occurrence: None)
  Receive Date: 20090629
  Receipt Date: 20090624
  Transmission Date: 20091009
  Serious: Yes (Life-Threatening)
  Sender: FDA-Public Use
  Company Number: FR-AVENTIS-200912321FR

PATIENT
  Age: 80 Year
  Sex: Female

DRUGS (6)
  1. LOVENOX [Suspect]
     Indication: THROMBOSIS PROPHYLAXIS
     Route: 058
     Dates: start: 20090516, end: 20090518
  2. COUMADIN [Suspect]
     Route: 048
     Dates: start: 20090201, end: 20090516
  3. VALIUM [Concomitant]
     Indication: ANXIETY
     Route: 048
     Dates: start: 20090201, end: 20090516
  4. RISPERDAL [Concomitant]
     Indication: AGITATION
     Route: 048
     Dates: end: 20090516
  5. MEPRONIZINE                        /00789201/ [Concomitant]
     Indication: INSOMNIA
     Route: 048
     Dates: end: 20090516
  6. SECTRAL [Concomitant]
     Route: 048
     Dates: end: 20090518

REACTIONS (4)
  - DRUG INTERACTION [None]
  - EXTRADURAL HAEMATOMA [None]
  - INTRACRANIAL PRESSURE INCREASED [None]
  - SUBDURAL HAEMATOMA [None]
